FAERS Safety Report 5251882-5 (Version None)
Quarter: 2007Q1

REPORT INFORMATION
  Report Type: 
  Country: None (occurrence: None)
  Receive Date: 20070223
  Receipt Date: 20070223
  Transmission Date: 20070707
  Serious: Yes (Death)
  Sender: FDA-Public Use
  Company Number: 236600

PATIENT
  Age: 50 Year
  Sex: Male

DRUGS (1)
  1. ACTILYSE(ALTEPLASE) PWDR + SOLVENT, INFUSION SOLN [Suspect]
     Indication: ACUTE MYOCARDIAL INFARCTION
     Dosage: 50 MG, SINGLE; INTRAVENOUS
     Route: 042
     Dates: start: 20070210, end: 20070210

REACTIONS (1)
  - DEATH [None]
